FAERS Safety Report 9189594 (Version 1)
Quarter: 2013Q1

REPORT INFORMATION
  Report Type: Spontaneous
  Country: US (occurrence: None)
  Receive Date: 20130322
  Receipt Date: 20130322
  Transmission Date: 20140127
  Serious: Yes (Other)
  Sender: FDA-Public Use
  Company Number: None

PATIENT
  Sex: Female
  Weight: 66 kg

DRUGS (2)
  1. AVEENO BABY ECZEMA THERAPY SOOTHING BATH TREATMENT [Suspect]
     Dosage: ENOUGH, FEW TIMES, TOPICAL
     Route: 061
     Dates: start: 201302
  2. SINGULAIR [Concomitant]

REACTIONS (1)
  - Asthma [None]
